FAERS Safety Report 8297206-0 (Version None)
Quarter: 2012Q2

REPORT INFORMATION
  Report Type: 
  Country: None (occurrence: None)
  Receive Date: 20120419
  Receipt Date: 20120405
  Transmission Date: 20120825
  Serious: Yes (Other)
  Sender: FDA-Public Use
  Company Number: US-BAYER-201041747NA

PATIENT
  Age: 26 Year
  Sex: Female
  Weight: 67.574 kg

DRUGS (6)
  1. MULTI-VITAMINS [Concomitant]
     Dosage: UNK
     Dates: start: 20081029
  2. ACCUTANE [Concomitant]
  3. YASMIN [Suspect]
     Indication: PRODUCT USED FOR UNKNOWN INDICATION
     Route: 048
  4. ACETAMINOPHEN W/ CODEINE [Concomitant]
     Indication: PAIN
     Dosage: UNK
     Route: 048
     Dates: start: 20081023
  5. TYLENOL W/ CODEINE [Concomitant]
     Dosage: UNK
     Dates: start: 20081029
  6. YAZ [Suspect]
     Indication: ACNE
     Dosage: 1 DF, QD
     Route: 048
     Dates: start: 20071222, end: 20080701

REACTIONS (7)
  - EMOTIONAL DISTRESS [None]
  - SCAR [None]
  - ABDOMINAL PAIN [None]
  - CHOLECYSTITIS CHRONIC [None]
  - GALLBLADDER INJURY [None]
  - GALLBLADDER POLYP [None]
  - WEIGHT DECREASED [None]
